FAERS Safety Report 22668946 (Version 10)
Quarter: 2025Q3

REPORT INFORMATION
  Report Type: Report from Study
  Country: US (occurrence: US)
  Receive Date: 20230704
  Receipt Date: 20250903
  Transmission Date: 20251020
  Serious: Yes (Hospitalization, Other)
  Sender: PFIZER
  Company Number: US-PFIZER INC-PV202300115393

PATIENT
  Age: 90 Year
  Sex: Male

DRUGS (8)
  1. VYNDAQEL [Suspect]
     Active Substance: TAFAMIDIS MEGLUMINE
     Indication: Amyloidosis
     Dosage: 60 MG, 1X/DAY
     Route: 048
     Dates: start: 20220726
  2. VYNDAQEL [Suspect]
     Active Substance: TAFAMIDIS MEGLUMINE
     Indication: Cardiomyopathy
     Dosage: TAKE ONE CAPSULE (20 MG) BY MOUTH DAILY
     Route: 048
     Dates: start: 20220726
  3. ALBUTEROL SULFATE [Concomitant]
     Active Substance: ALBUTEROL SULFATE
  4. VITAMIN D NOS [Concomitant]
     Active Substance: CHOLECALCIFEROL\ERGOCALCIFEROL
  5. MUPIROCIN [Concomitant]
     Active Substance: MUPIROCIN
  6. TYLENOL [Concomitant]
     Active Substance: ACETAMINOPHEN
  7. ALBUTEROL [Concomitant]
     Active Substance: ALBUTEROL
  8. ELIQUIS [Concomitant]
     Active Substance: APIXABAN

REACTIONS (16)
  - Vomiting [Not Recovered/Not Resolved]
  - Dizziness [Not Recovered/Not Resolved]
  - Fatigue [Not Recovered/Not Resolved]
  - Asthenia [Not Recovered/Not Resolved]
  - Skin laceration [Unknown]
  - Atrial fibrillation [Unknown]
  - Rash [Recovered/Resolved]
  - Pollakiuria [Not Recovered/Not Resolved]
  - Rash erythematous [Recovering/Resolving]
  - Heart rate decreased [Unknown]
  - Blood pressure abnormal [Unknown]
  - Rash [Unknown]
  - Chest pain [Unknown]
  - Fluid retention [Unknown]
  - Heart rate increased [Unknown]
  - Off label use [Unknown]

NARRATIVE: CASE EVENT DATE: 20220726
